FAERS Safety Report 13037551 (Version 1)
Quarter: 2016Q4

REPORT INFORMATION
  Report Type: Spontaneous
  Country: US (occurrence: US)
  Receive Date: 20161217
  Receipt Date: 20161217
  Transmission Date: 20170207
  Serious: No
  Sender: FDA-Public Use
  Company Number: US-TEVA-715367ACC

PATIENT
  Age: 17 Year
  Sex: Female
  Weight: 90.8 kg

DRUGS (1)
  1. PLAN B ONE-STEP [Suspect]
     Active Substance: LEVONORGESTREL
     Indication: POST COITAL CONTRACEPTION
     Dates: start: 20160914, end: 20160914

REACTIONS (6)
  - Menstruation delayed [Recovered/Resolved]
  - Menstruation irregular [Recovered/Resolved]
  - Breast pain [Unknown]
  - Abdominal distension [Not Recovered/Not Resolved]
  - Back pain [Recovered/Resolved]
  - Upper respiratory tract infection [Recovered/Resolved]

NARRATIVE: CASE EVENT DATE: 20160914
